FAERS Safety Report 5480674-7 (Version None)
Quarter: 2007Q4

REPORT INFORMATION
  Report Type: 
  Country: None (occurrence: None)
  Receive Date: 20071003
  Receipt Date: 20070921
  Transmission Date: 20080405
  Serious: Yes (Hospitalization)
  Sender: FDA-Public Use
  Company Number: 2007331466

PATIENT
  Age: 19 Year
  Sex: Male

DRUGS (1)
  1. BENADRYL [Suspect]
     Indication: DRUG ABUSER
     Dosage: 49 TABLETS 2 DAYS, ORAL
     Route: 048
     Dates: start: 20070920, end: 20070921

REACTIONS (3)
  - CONVULSION [None]
  - SOMNOLENCE [None]
  - VOMITING [None]
